FAERS Safety Report 6619594-0 (Version None)
Quarter: 2010Q1

REPORT INFORMATION
  Report Type: 
  Country: None (occurrence: None)
  Receive Date: 20100309
  Receipt Date: 20100301
  Transmission Date: 20100710
  Serious: Yes (Hospitalization)
  Sender: FDA-Public Use
  Company Number: ES-JNJFOC-20100300629

PATIENT
  Sex: Male

DRUGS (2)
  1. REMICADE [Suspect]
     Indication: ANKYLOSING SPONDYLITIS
     Dosage: INFLIXIMAB GIVEN FOR APPROXIMATELY 3 YEARS
     Route: 042
  2. REMICADE [Suspect]
     Route: 042

REACTIONS (2)
  - BLINDNESS [None]
  - HEADACHE [None]
